FAERS Safety Report 19506579 (Version 1)
Quarter: 2021Q3

REPORT INFORMATION
  Report Type: Spontaneous
  Country: US (occurrence: US)
  Receive Date: 20210708
  Receipt Date: 20210708
  Transmission Date: 20211014
  Serious: No
  Sender: FDA-Public Use
  Company Number: None

PATIENT
  Sex: Female

DRUGS (20)
  1. ACETAZOLAMID ER [Concomitant]
  2. DORZOL/TIMOL [Concomitant]
  3. LISINOPRIL. [Concomitant]
     Active Substance: LISINOPRIL
  4. POLMYXIN B/TRIMETHP [Concomitant]
  5. ASPIRIN. [Concomitant]
     Active Substance: ASPIRIN
  6. BRIMONIDINE OP [Concomitant]
  7. CEPHALEXIN. [Concomitant]
     Active Substance: CEPHALEXIN
  8. DORZOLAMIDE OP [Concomitant]
  9. COMBIGAN [Concomitant]
     Active Substance: BRIMONIDINE TARTRATE\TIMOLOL MALEATE
  10. GLATIRAMER 40MG/ML SYR [Suspect]
     Active Substance: GLATIRAMER
     Indication: MULTIPLE SCLEROSIS
     Route: 058
     Dates: start: 20171103
  11. GLIPIZIDE. [Concomitant]
     Active Substance: GLIPIZIDE
  12. LATANOPROST. [Concomitant]
     Active Substance: LATANOPROST
  13. METFORMIN [Concomitant]
     Active Substance: METFORMIN HYDROCHLORIDE
  14. METOPROL TAR [Concomitant]
  15. TRAMADOL HCL [Concomitant]
     Active Substance: TRAMADOL HYDROCHLORIDE
  16. AMOX/K CLAV [Concomitant]
     Active Substance: AMOXICILLIN\CLAVULANATE POTASSIUM
  17. ATORVASTATIN [Concomitant]
     Active Substance: ATORVASTATIN
  18. PREDNISOLONE OP [Concomitant]
  19. TUMERIC [Concomitant]
     Active Substance: HERBALS\TURMERIC
  20. RYBELSUS [Concomitant]
     Active Substance: SEMAGLUTIDE

REACTIONS (3)
  - Chills [None]
  - Feeling of body temperature change [None]
  - Nausea [None]
